FAERS Safety Report 15176096 (Version 2)
Quarter: 2018Q4

REPORT INFORMATION
  Report Type: Report from Study
  Country: US (occurrence: US)
  Receive Date: 20180720
  Receipt Date: 20181017
  Transmission Date: 20190204
  Serious: No
  Sender: FDA-Public Use
  Company Number: US-AMGEN-USASL2018089664

PATIENT
  Age: 71 Year
  Sex: Female

DRUGS (2)
  1. COREG [Suspect]
     Active Substance: CARVEDILOL
     Indication: BLOOD PRESSURE ABNORMAL
     Route: 065
  2. REPATHA [Suspect]
     Active Substance: EVOLOCUMAB
     Indication: HYPERCHOLESTEROLAEMIA
     Dosage: 420 MG, QMO
     Route: 065
     Dates: start: 201803

REACTIONS (9)
  - Memory impairment [Unknown]
  - Photopsia [Unknown]
  - Muscle spasms [Unknown]
  - Hypoaesthesia oral [Unknown]
  - Asthenia [Unknown]
  - Hypoaesthesia [Unknown]
  - Dizziness [Unknown]
  - Muscular weakness [Unknown]
  - Myalgia [Unknown]

NARRATIVE: CASE EVENT DATE: 2018
